FAERS Safety Report 7809247-5 (Version None)
Quarter: 2011Q4

REPORT INFORMATION
  Report Type: 
  Country: None (occurrence: None)
  Receive Date: 20111006
  Receipt Date: 20110927
  Transmission Date: 20120403
  Serious: Yes (Other)
  Sender: FDA-Public Use
  Company Number: AUR-APU-2010-00992

PATIENT
  Age: 70 Year
  Sex: Male
  Weight: 73 kg

DRUGS (3)
  1. VENLAFAXINE [Suspect]
     Indication: DEPRESSION
     Dosage: 37.5 MG (37.5 MG,1 IN 1 D)
     Dates: start: 20060201
  2. MIRTAZAPINE [Suspect]
     Indication: DEPRESSION
     Dosage: 15 MG (15 MG, L IN 1 D), ORAL
     Dates: start: 20060601
  3. CLONAZEPAM [Concomitant]

REACTIONS (6)
  - PARKINSONIAN GAIT [None]
  - PARTNER STRESS [None]
  - PANIC ATTACK [None]
  - COGWHEEL RIGIDITY [None]
  - SUICIDE ATTEMPT [None]
  - MALAISE [None]
